FAERS Safety Report 23236540 (Version 1)
Quarter: 2023Q4

REPORT INFORMATION
  Report Type: Report from Study
  Country: CL (occurrence: CL)
  Receive Date: 20231128
  Receipt Date: 20231128
  Transmission Date: 20240110
  Serious: Yes (Disabling)
  Sender: FDA-Public Use
  Company Number: CL-002147023-NVSC2023CL193439

PATIENT
  Age: 35 Year
  Sex: Female

DRUGS (2)
  1. KISQALI [Suspect]
     Active Substance: RIBOCICLIB
     Indication: Breast cancer
     Dosage: 600 MG, QD
     Route: 048
     Dates: start: 20230822
  2. KISQALI [Suspect]
     Active Substance: RIBOCICLIB
     Dosage: 600 MG, QD
     Route: 048
     Dates: start: 20230822

REACTIONS (5)
  - Mobility decreased [Unknown]
  - Nasopharyngitis [Unknown]
  - Fear [Unknown]
  - Nasal congestion [Unknown]
  - Stomatitis [Unknown]

NARRATIVE: CASE EVENT DATE: 20230829
